FAERS Safety Report 7259598-0 (Version None)
Quarter: 2011Q1

REPORT INFORMATION
  Report Type: 
  Country: None (occurrence: None)
  Receive Date: 20110130
  Receipt Date: 20100908
  Transmission Date: 20110831
  Serious: No
  Sender: FDA-Public Use
  Company Number: PR-ABBOTT-10P-131-0669594-00

PATIENT
  Sex: Female
  Weight: 68.1 kg

DRUGS (2)
  1. ASACOL [Concomitant]
     Indication: CROHN'S DISEASE
     Route: 048
  2. HUMIRA [Suspect]
     Indication: CROHN'S DISEASE
     Dosage: 1 PEN
     Route: 058
     Dates: start: 20090101

REACTIONS (1)
  - HAEMATOCHEZIA [None]
